FAERS Safety Report 20214726 (Version 1)
Quarter: 2021Q4

REPORT INFORMATION
  Report Type: Spontaneous
  Country: US (occurrence: US)
  Receive Date: 20211222
  Receipt Date: 20211222
  Transmission Date: 20220303
  Serious: Yes (Life-Threatening, Hospitalization)
  Sender: FDA-Public Use
  Company Number: US-STRIDES ARCOLAB LIMITED-2021SP031271

PATIENT
  Age: 39 Year
  Sex: Male

DRUGS (2)
  1. DUTASTERIDE [Suspect]
     Active Substance: DUTASTERIDE
     Indication: Hormone suppression therapy
     Dosage: 0.5 MILLIGRAM PER DAY
     Route: 065
  2. ESTRADIOL [Suspect]
     Active Substance: ESTRADIOL
     Indication: Sexual dysfunction
     Dosage: 2 MILLIGRAM PER DAY
     Route: 065

REACTIONS (1)
  - Drug abuse [Unknown]
